FAERS Safety Report 5905052-5 (Version None)
Quarter: 2008Q3

REPORT INFORMATION
  Report Type: 
  Country: None (occurrence: None)
  Receive Date: 20080909
  Receipt Date: 20080609
  Transmission Date: 20090109
  Serious: Yes (Hospitalization)
  Sender: FDA-Public Use
  Company Number: 163-20785-08050939

PATIENT
  Age: 57 Year
  Sex: Male

DRUGS (15)
  1. THALOMID [Suspect]
     Indication: MULTIPLE MYELOMA
     Dosage: 200 MG, 4 IN 1 D, ORAL
     Route: 048
     Dates: start: 20070803, end: 20070101
  2. THALOMID [Suspect]
  3. DEXAMETHASONE TAB [Concomitant]
  4. CISPLATIN [Concomitant]
  5. DOXORUBICIN HCL [Concomitant]
  6. CYCLOPHOSPHAMIDE [Concomitant]
  7. ETOPOSIDE [Concomitant]
  8. COUMADIN [Concomitant]
  9. ACYCLOVIR [Concomitant]
  10. DIFLUCAN [Concomitant]
  11. PREVACID [Concomitant]
  12. MAG-OX (MAGNESIUM OXIDE) [Concomitant]
  13. PHENERGAN HCL [Concomitant]
  14. ZOFRAN [Concomitant]
  15. BACLOFEN [Concomitant]

REACTIONS (8)
  - ANAEMIA [None]
  - BRADYCARDIA [None]
  - DYSPNOEA [None]
  - FATIGUE [None]
  - PANCYTOPENIA [None]
  - PYREXIA [None]
  - THROMBOCYTOPENIA [None]
  - WHITE BLOOD CELL COUNT DECREASED [None]
